FAERS Safety Report 4834618-9 (Version None)
Quarter: 2005Q4

REPORT INFORMATION
  Report Type: 
  Country: None (occurrence: None)
  Receive Date: 20051122
  Receipt Date: 20050520
  Transmission Date: 20060501
  Serious: No
  Sender: FDA-Public Use
  Company Number: US-BRISTOL-MYERS SQUIBB COMPANY-12976320

PATIENT
  Age: 59 Year
  Sex: Male
  Weight: 93 kg

DRUGS (4)
  1. PRAVACHOL [Suspect]
     Indication: BLOOD CHOLESTEROL INCREASED
     Route: 048
     Dates: start: 20040101
  2. FLEXERIL [Concomitant]
  3. IBUPROFEN [Concomitant]
  4. VITAMINS [Concomitant]

REACTIONS (4)
  - BACK PAIN [None]
  - MULTIPLE FRACTURES [None]
  - RENAL PAIN [None]
  - URINARY TRACT DISORDER [None]
